FAERS Safety Report 7601635-5 (Version None)
Quarter: 2011Q3

REPORT INFORMATION
  Report Type: 
  Country: None (occurrence: None)
  Receive Date: 20110711
  Receipt Date: 20110701
  Transmission Date: 20111222
  Serious: Yes (Hospitalization)
  Sender: FDA-Public Use
  Company Number: JP-BRISTOL-MYERS SQUIBB COMPANY-15800311

PATIENT
  Age: 68 Year
  Sex: Male

DRUGS (10)
  1. HYDROCHLOROTHIAZIDE [Concomitant]
  2. INSULIN [Concomitant]
     Indication: DIABETES MELLITUS
  3. PLACEBO [Suspect]
     Indication: HEPATIC NEOPLASM MALIGNANT
     Dosage: INTERRUPTED ON 31MAY2011 AND DISCONTINUED ON OR AFTER 02-JUN-2011
     Route: 048
     Dates: start: 20110419
  4. TELMISARTAN [Concomitant]
  5. BISOPROLOL FUMARATE [Concomitant]
     Indication: HYPERTENSION
  6. CISPLATIN [Suspect]
  7. CILNIDIPINE [Concomitant]
  8. GLIMEPIRIDE [Concomitant]
     Indication: DIABETES MELLITUS
  9. BRIVANIB ALANINATE [Suspect]
     Indication: HEPATIC NEOPLASM MALIGNANT
     Dosage: INTERRUPTED ON 31MAY2011 AND DISCONTINUED ON OR AFTER 02-JUN-2011
     Route: 048
     Dates: start: 20110419
  10. SITAGLIPTIN PHOSPHATE [Concomitant]
     Indication: DIABETES MELLITUS

REACTIONS (1)
  - DUODENAL ULCER [None]
